FAERS Safety Report 11804811 (Version 1)
Quarter: 2015Q4

REPORT INFORMATION
  Report Type: Spontaneous
  Country: US (occurrence: US)
  Receive Date: 20151205
  Receipt Date: 20151205
  Transmission Date: 20160305
  Serious: No
  Sender: FDA-Public Use
  Company Number: US-BAUSCH-BL-2014-008304

PATIENT
  Age: 64 Year
  Sex: Male

DRUGS (1)
  1. XENAZINE [Suspect]
     Active Substance: TETRABENAZINE
     Indication: DYSKINESIA
     Route: 048
     Dates: start: 20140716

REACTIONS (4)
  - Intentional product use issue [Not Recovered/Not Resolved]
  - Depression [Unknown]
  - Mood altered [Unknown]
  - Feeding disorder [Unknown]

NARRATIVE: CASE EVENT DATE: 20140716
